FAERS Safety Report 16215113 (Version 1)
Quarter: 2019Q2

REPORT INFORMATION
  Report Type: Spontaneous
  Country: US (occurrence: US)
  Receive Date: 20190418
  Receipt Date: 20190418
  Transmission Date: 20190711
  Serious: Yes (Hospitalization)
  Sender: FDA-Public Use
  Company Number: None

PATIENT
  Age: 63 Year
  Sex: Female

DRUGS (2)
  1. CAPECITABINE. [Suspect]
     Active Substance: CAPECITABINE
     Indication: BREAST CANCER FEMALE
     Dosage: ?          OTHER FREQUENCY:BID DAY 1-14 (21D);?
     Route: 048
     Dates: start: 20181228, end: 20190404
  2. PROLIA 60MG PFS [Concomitant]
     Dates: start: 20181211

REACTIONS (2)
  - Malaise [None]
  - Adverse drug reaction [None]

NARRATIVE: CASE EVENT DATE: 20190404
